FAERS Safety Report 6862036-0 (Version None)
Quarter: 2010Q3

REPORT INFORMATION
  Report Type: 
  Country: None (occurrence: None)
  Receive Date: 20100721
  Receipt Date: 20100714
  Transmission Date: 20110219
  Serious: Yes (Other)
  Sender: FDA-Public Use
  Company Number: BE-AMGEN-KDL423544

PATIENT
  Age: 76 Year
  Sex: Female
  Weight: 45.9 kg

DRUGS (2)
  1. NPLATE [Suspect]
     Indication: IDIOPATHIC THROMBOCYTOPENIC PURPURA
     Route: 058
     Dates: start: 20100320
  2. PREDNISONE [Concomitant]
     Route: 048
     Dates: end: 20100408

REACTIONS (1)
  - LYMPHOCYTOSIS [None]
